FAERS Safety Report 8244980-5 (Version None)
Quarter: 2012Q1

REPORT INFORMATION
  Report Type: 
  Country: None (occurrence: None)
  Receive Date: 20120329
  Receipt Date: 20111108
  Transmission Date: 20120608
  Serious: No
  Sender: FDA-Public Use
  Company Number: US-MYLANLABS-2011S1023049

PATIENT
  Age: 61 Year
  Sex: Female

DRUGS (3)
  1. FENTANYL-100 [Suspect]
     Dosage: QOD
     Route: 062
     Dates: start: 20111101
  2. FENTANYL-100 [Suspect]
     Indication: PAIN
     Dosage: QOD
     Route: 062
     Dates: start: 20111101
  3. FENTANYL-100 [Suspect]
     Dosage: QD
     Route: 062
     Dates: start: 20111101, end: 20111101

REACTIONS (2)
  - INTENTIONAL DRUG MISUSE [None]
  - NO ADVERSE EVENT [None]
